FAERS Safety Report 4695041-3 (Version None)
Quarter: 2005Q2

REPORT INFORMATION
  Report Type: 
  Country: None (occurrence: None)
  Receive Date: 20050617
  Receipt Date: 20050608
  Transmission Date: 20051028
  Serious: Yes (Hospitalization, Other)
  Sender: FDA-Public Use
  Company Number: 2005087869

PATIENT
  Age: 55 Year
  Sex: Male

DRUGS (1)
  1. SOLU-MEDROL [Suspect]
     Indication: MULTIPLE SCLEROSIS
     Dosage: 1 GRAM, INTRAVENOUS
     Route: 042

REACTIONS (4)
  - HAEMORRHAGE [None]
  - HEADACHE [None]
  - INFUSION RELATED REACTION [None]
  - VENOUS THROMBOSIS LIMB [None]
